FAERS Safety Report 18750974 (Version 2)
Quarter: 2021Q1

REPORT INFORMATION
  Report Type: Spontaneous
  Country: US (occurrence: US)
  Receive Date: 20210118
  Receipt Date: 20210211
  Transmission Date: 20210419
  Serious: No
  Sender: FDA-Public Use
  Company Number: US-JNJFOC-20210116025

PATIENT
  Age: 26 Year
  Sex: Male
  Weight: 90.35 kg

DRUGS (1)
  1. REMICADE [Suspect]
     Active Substance: INFLIXIMAB
     Indication: CROHN^S DISEASE
     Route: 042
     Dates: start: 20210111

REACTIONS (6)
  - Dehydration [Unknown]
  - Product preparation issue [Unknown]
  - Injection site extravasation [Unknown]
  - Off label use [Unknown]
  - Incorrect dose administered [Unknown]
  - Poor venous access [Unknown]

NARRATIVE: CASE EVENT DATE: 20210111
